FAERS Safety Report 20689772 (Version 2)
Quarter: 2022Q2

REPORT INFORMATION
  Report Type: Report from Study
  Country: FR (occurrence: FR)
  Receive Date: 20220408
  Receipt Date: 20220525
  Transmission Date: 20220721
  Serious: Yes (Death, Hospitalization, Other)
  Sender: FDA-Public Use
  Company Number: FR-GLAXOSMITHKLINE-FR2022EME060118

PATIENT

DRUGS (5)
  1. BELANTAMAB MAFODOTIN [Suspect]
     Active Substance: BELANTAMAB MAFODOTIN
     Indication: Plasma cell myeloma
     Dosage: EVERY 3 WEEKS
     Route: 042
     Dates: start: 20200528, end: 20200917
  2. DEXAMETHASONE [Concomitant]
     Active Substance: DEXAMETHASONE
     Dosage: LINE 10
     Route: 065
     Dates: start: 20201118
  3. CISPLATIN [Concomitant]
     Active Substance: CISPLATIN
     Dosage: LINE 10
     Route: 065
     Dates: start: 20201118
  4. CYCLOPHOSPHAMIDE [Concomitant]
     Active Substance: CYCLOPHOSPHAMIDE
     Dosage: LINE 10
     Dates: start: 20201118
  5. ETOPOPHOS [Concomitant]
     Active Substance: ETOPOSIDE PHOSPHATE
     Dosage: LINE 10
     Route: 065
     Dates: start: 20201118

REACTIONS (7)
  - Death [Fatal]
  - Acute kidney injury [Unknown]
  - COVID-19 [Recovered/Resolved]
  - General physical health deterioration [Recovering/Resolving]
  - Lung disorder [Recovered/Resolved]
  - Vision blurred [Unknown]
  - C-reactive protein increased [Recovered/Resolved]

NARRATIVE: CASE EVENT DATE: 20200706
